FAERS Safety Report 5059706-6 (Version None)
Quarter: 2006Q3

REPORT INFORMATION
  Report Type: 
  Country: None (occurrence: None)
  Receive Date: 20060724
  Receipt Date: 20060712
  Transmission Date: 20061208
  Serious: Yes (Other)
  Sender: FDA-Public Use
  Company Number: BR-ROCHE-455607

PATIENT
  Age: 49 Year
  Sex: Female

DRUGS (3)
  1. BONIVA [Suspect]
     Indication: OSTEOPOROSIS
     Dosage: DOSE REPORTED AS 150 MG/MONTH
     Route: 048
     Dates: start: 20060709, end: 20060709
  2. OSCAL [Concomitant]
     Indication: OSTEOPOROSIS
     Dosage: DRUD REPORTED AS CALCIUM CARBONATE, VIATMIN D/ OSCAL D
     Route: 048
  3. EUTHYROX [Concomitant]
     Dosage: INDICATION REPORTED AS THYROID.
     Route: 048

REACTIONS (6)
  - DIZZINESS [None]
  - DYSPEPSIA [None]
  - INFLUENZA LIKE ILLNESS [None]
  - MYALGIA [None]
  - OESOPHAGITIS [None]
  - SWELLING [None]
